FAERS Safety Report 4650108-0 (Version None)
Quarter: 2005Q2

REPORT INFORMATION
  Report Type: 
  Country: None (occurrence: None)
  Receive Date: 20050428
  Receipt Date: 20050422
  Transmission Date: 20051028
  Serious: Yes (Death)
  Sender: FDA-Public Use
  Company Number: 200511487BCC

PATIENT
  Age: 70 Year
  Sex: Male
  Weight: 81.6475 kg

DRUGS (4)
  1. ASPIRIN [Suspect]
     Indication: MYOCARDIAL INFARCTION
     Dosage: 81 MG QD ORAL
     Route: 048
     Dates: start: 19900101, end: 20040101
  2. ASPIRIN [Suspect]
     Indication: PROPHYLAXIS
     Dosage: 81 MG QD ORAL
     Route: 048
     Dates: start: 19900101, end: 20040101
  3. MANY MEDICATIONS [Concomitant]
  4. NITROGLYCERIN [Concomitant]

REACTIONS (4)
  - MYOCARDIAL INFARCTION [None]
  - SMOKER [None]
  - SUDDEN DEATH [None]
  - VASCULAR BYPASS DYSFUNCTION [None]
